FAERS Safety Report 18980075 (Version 3)
Quarter: 2023Q4

REPORT INFORMATION
  Report Type: Spontaneous
  Country: US (occurrence: US)
  Receive Date: 20210308
  Receipt Date: 20231026
  Transmission Date: 20240109
  Serious: Yes (Other)
  Sender: FDA-Public Use
  Company Number: US-GILEAD-2021-0519282

PATIENT
  Age: 52 Year
  Sex: Male
  Weight: 74.83 kg

DRUGS (67)
  1. ATRIPLA [Suspect]
     Active Substance: EFAVIRENZ\EMTRICITABINE\TENOFOVIR DISOPROXIL FUMARATE
     Indication: HIV infection
     Dosage: UNK
     Route: 048
     Dates: start: 20090210, end: 20130209
  2. ATRIPLA [Suspect]
     Active Substance: EFAVIRENZ\EMTRICITABINE\TENOFOVIR DISOPROXIL FUMARATE
     Dosage: UNK
     Route: 048
     Dates: start: 20090210, end: 201205
  3. ATRIPLA [Suspect]
     Active Substance: EFAVIRENZ\EMTRICITABINE\TENOFOVIR DISOPROXIL FUMARATE
     Dosage: UNK
     Route: 048
     Dates: start: 20120531, end: 201301
  4. ATRIPLA [Suspect]
     Active Substance: EFAVIRENZ\EMTRICITABINE\TENOFOVIR DISOPROXIL FUMARATE
     Dosage: UNK
     Route: 048
     Dates: start: 20130110, end: 20130209
  5. ATRIPLA [Suspect]
     Active Substance: EFAVIRENZ\EMTRICITABINE\TENOFOVIR DISOPROXIL FUMARATE
     Dosage: UNK
     Route: 048
     Dates: start: 201003, end: 201302
  6. COMBIVIR [Concomitant]
     Active Substance: LAMIVUDINE\ZIDOVUDINE
  7. EDURANT [Concomitant]
     Active Substance: RILPIVIRINE HYDROCHLORIDE
  8. EPIVIR [Concomitant]
     Active Substance: LAMIVUDINE
  9. EPZICOM [Concomitant]
     Active Substance: ABACAVIR SULFATE\LAMIVUDINE
  10. SUSTIVA [Concomitant]
     Active Substance: EFAVIRENZ
  11. ZIAGEN [Concomitant]
     Active Substance: ABACAVIR SULFATE
  12. ABACAVIR [Concomitant]
     Active Substance: ABACAVIR
  13. ALFUZOSIN [Concomitant]
     Active Substance: ALFUZOSIN
  14. AMPICILLIN [Concomitant]
     Active Substance: AMPICILLIN
  15. AZITHROMYCIN [Concomitant]
     Active Substance: AZITHROMYCIN
  16. CARVEDILOL [Concomitant]
     Active Substance: CARVEDILOL
  17. CELEBREX [Concomitant]
     Active Substance: CELECOXIB
  18. CEPHALEXIN [Concomitant]
     Active Substance: CEPHALEXIN
  19. CHANTIX [Concomitant]
     Active Substance: VARENICLINE TARTRATE
  20. CIALIS [Concomitant]
     Active Substance: TADALAFIL
  21. CLINDAMYCIN [Concomitant]
     Active Substance: CLINDAMYCIN
  22. CLOPIDOGREL [Concomitant]
     Active Substance: CLOPIDOGREL BISULFATE
  23. DETROL [Concomitant]
     Active Substance: TOLTERODINE TARTRATE
  24. DRONABINOL [Concomitant]
     Active Substance: DRONABINOL
  25. EZETIMIBE [Concomitant]
     Active Substance: EZETIMIBE
  26. IRON [Concomitant]
     Active Substance: IRON
  27. FINASTERIDE [Concomitant]
     Active Substance: FINASTERIDE
  28. FLUTICASONE [Concomitant]
     Active Substance: FLUTICASONE
  29. FORMALDEHYDE SOLUTION [Concomitant]
     Active Substance: FORMALDEHYDE
  30. GAVILYTE G [Concomitant]
     Active Substance: POLYETHYLENE GLYCOL 3350\POTASSIUM CHLORIDE\SODIUM BICARBONATE\SODIUM CHLORIDE\SODIUM SULFATE
  31. LISINOPRIL [Concomitant]
     Active Substance: LISINOPRIL
  32. MEGESTROL [Concomitant]
     Active Substance: MEGESTROL
  33. METHYLPREDNISOLONE [Concomitant]
     Active Substance: METHYLPREDNISOLONE
  34. METOCLOPRAMIDE [Concomitant]
     Active Substance: METOCLOPRAMIDE
  35. NICODERM CQ [Concomitant]
     Active Substance: NICOTINE
  36. NICOTINE [Concomitant]
     Active Substance: NICOTINE
  37. K PHOS NEUTRAL [Concomitant]
     Active Substance: POTASSIUM PHOSPHATE, MONOBASIC\SODIUM PHOSPHATE, DIBASIC, ANHYDROUS\SODIUM PHOSPHATE, MONOBASIC, MON
  38. PLAVIX [Concomitant]
     Active Substance: CLOPIDOGREL BISULFATE
  39. PRAVASTATIN [Concomitant]
     Active Substance: PRAVASTATIN
  40. SODIUM BICARBONATE [Concomitant]
     Active Substance: SODIUM BICARBONATE
  41. SULFAMETHOXAZOLE [Concomitant]
     Active Substance: SULFAMETHOXAZOLE
  42. TRILIPIX [Concomitant]
     Active Substance: FENOFIBRIC ACID
  43. TROSPIUM [Concomitant]
     Active Substance: TROSPIUM
  44. UROXATRAL [Concomitant]
     Active Substance: ALFUZOSIN HYDROCHLORIDE
  45. VENTOLIN [Concomitant]
     Active Substance: ALBUTEROL SULFATE
  46. VIAGRA [Concomitant]
     Active Substance: SILDENAFIL CITRATE
  47. VITAMIN D NOS [Concomitant]
     Active Substance: VITAMIN D NOS
  48. ZETIA [Concomitant]
     Active Substance: EZETIMIBE
  49. FENTANYL [Concomitant]
     Active Substance: FENTANYL\FENTANYL CITRATE
  50. CEFAZOLIN [Concomitant]
     Active Substance: CEFAZOLIN
  51. DEXAMETHASONE [Concomitant]
     Active Substance: DEXAMETHASONE
  52. MIDAZOLAM [Concomitant]
     Active Substance: MIDAZOLAM
  53. ONDANSETRON [Concomitant]
     Active Substance: ONDANSETRON
  54. ASPIRIN [Concomitant]
     Active Substance: ASPIRIN
  55. POTASSIUM CHLORIDE [Concomitant]
     Active Substance: POTASSIUM CHLORIDE
  56. MAGNESIUM [Concomitant]
     Active Substance: MAGNESIUM
  57. CALCITRIOL [Concomitant]
     Active Substance: CALCITRIOL
  58. GOLYTELY [Concomitant]
     Active Substance: POLYETHYLENE GLYCOL 3350\POTASSIUM CHLORIDE\SODIUM BICARBONATE\SODIUM CHLORIDE\SODIUM SULFATE
  59. LYRICA [Concomitant]
     Active Substance: PREGABALIN
     Dosage: UNK
  60. METOPROLOL [Concomitant]
     Active Substance: METOPROLOL
     Dosage: UNK
  61. NITROGLYCERIN [Concomitant]
     Active Substance: NITROGLYCERIN
     Dosage: UNK
  62. FUROSEMIDE [Concomitant]
     Active Substance: FUROSEMIDE
  63. HEPARIN [Concomitant]
     Active Substance: HEPARIN SODIUM
     Dosage: UNK
  64. TAMSULOSIN [Concomitant]
     Active Substance: TAMSULOSIN
     Dosage: UNK
  65. PANTOPRAZOLE [Concomitant]
     Active Substance: PANTOPRAZOLE
     Dosage: UNK
  66. ACETYLCYSTEINE [Concomitant]
     Active Substance: ACETYLCYSTEINE
     Dosage: UNK
  67. HYDROCHLOROTHIAZIDE [Concomitant]
     Active Substance: HYDROCHLOROTHIAZIDE
     Dosage: UNK

REACTIONS (11)
  - Chronic kidney disease [Not Recovered/Not Resolved]
  - Osteoporosis [Not Recovered/Not Resolved]
  - Renal impairment [Not Recovered/Not Resolved]
  - Arteriosclerosis coronary artery [Not Recovered/Not Resolved]
  - Pain [Not Recovered/Not Resolved]
  - Emotional distress [Not Recovered/Not Resolved]
  - Anxiety [Not Recovered/Not Resolved]
  - Anhedonia [Not Recovered/Not Resolved]
  - Osteopenia [Not Recovered/Not Resolved]
  - Renal disorder [Unknown]
  - Bone density decreased [Unknown]

NARRATIVE: CASE EVENT DATE: 20101001
